FAERS Safety Report 7002575-5 (Version None)
Quarter: 2010Q3

REPORT INFORMATION
  Report Type: 
  Country: None (occurrence: None)
  Receive Date: 20100920
  Receipt Date: 20100609
  Transmission Date: 20110219
  Serious: No
  Sender: FDA-Public Use
  Company Number: US-ASTRAZENECA-2010SE26796

PATIENT
  Sex: Female

DRUGS (2)
  1. SEROQUEL [Suspect]
     Route: 048
  2. VITAMIN B-12 [Concomitant]

REACTIONS (5)
  - ABDOMINAL PAIN [None]
  - AGITATION [None]
  - GAIT DISTURBANCE [None]
  - MENTAL DISORDER [None]
  - NEUROPATHY PERIPHERAL [None]
